FAERS Safety Report 9251890 (Version 1)
Quarter: 2013Q2

REPORT INFORMATION
  Report Type: Spontaneous
  Country: US (occurrence: US)
  Receive Date: 20130424
  Receipt Date: 20130424
  Transmission Date: 20140414
  Serious: No
  Sender: FDA-Public Use
  Company Number: US-PFIZER INC-2013124036

PATIENT
  Age: 10 Year
  Sex: Female
  Weight: 22.68 kg

DRUGS (2)
  1. GENOTROPIN [Suspect]
     Indication: GROWTH RETARDATION
     Dosage: 1.0 MG, 1X/DAY
     Dates: start: 20130301, end: 201304
  2. FOCALIN [Concomitant]
     Indication: ATTENTION DEFICIT/HYPERACTIVITY DISORDER
     Dosage: 10 MG, 1X/DAY
     Route: 048

REACTIONS (2)
  - Depression [Recovered/Resolved]
  - Emotional disorder [Recovered/Resolved]
